FAERS Safety Report 23199515 (Version 2)
Quarter: 2023Q4

REPORT INFORMATION
  Report Type: Spontaneous
  Country: US (occurrence: US)
  Receive Date: 20231117
  Receipt Date: 20231201
  Transmission Date: 20240110
  Serious: Yes (Other)
  Sender: FDA-Public Use
  Company Number: US-Stemline Therapeutics, Inc.-2023ST002673

PATIENT
  Age: 51 Year
  Sex: Female

DRUGS (3)
  1. ORSERDU [Suspect]
     Active Substance: ELACESTRANT
     Indication: Product used for unknown indication
     Dosage: 345MG ONCE A DAY
     Route: 048
     Dates: start: 20230712
  2. ORSERDU [Suspect]
     Active Substance: ELACESTRANT
     Dosage: 345MG ONCE A DAY
     Route: 048
     Dates: start: 202307
  3. ORSERDU [Suspect]
     Active Substance: ELACESTRANT
     Dosage: 345MG ONCE A DAY
     Route: 048
     Dates: start: 20230712

REACTIONS (15)
  - Pulmonary oedema [Unknown]
  - Back pain [Not Recovered/Not Resolved]
  - Herpes zoster [Not Recovered/Not Resolved]
  - Fluid retention [Unknown]
  - Decreased appetite [Unknown]
  - Vomiting [Unknown]
  - Pain in extremity [Unknown]
  - Arthralgia [Unknown]
  - Muscle strain [Unknown]
  - Gait disturbance [Unknown]
  - Pain [Unknown]
  - Product dose omission issue [Unknown]
  - Myalgia [Unknown]
  - Productive cough [Unknown]
  - Dyspnoea [Unknown]
